FAERS Safety Report 16552999 (Version 6)
Quarter: 2019Q4

REPORT INFORMATION
  Report Type: Report from Study
  Country: US (occurrence: US)
  Receive Date: 20190710
  Receipt Date: 20191220
  Transmission Date: 20200122
  Serious: Yes (Other)
  Sender: FDA-Public Use
  Company Number: PHHY2019US153643

PATIENT
  Age: 18 Year
  Sex: Male

DRUGS (6)
  1. DASATINIB. [Concomitant]
     Active Substance: DASATINIB
     Indication: CHEMOTHERAPY
     Route: 065
  2. CYCLOPHOSPHAMIDE. [Concomitant]
     Active Substance: CYCLOPHOSPHAMIDE
     Indication: CHEMOTHERAPY
     Route: 065
  3. KYMRIAH [Suspect]
     Active Substance: TISAGENLECLEUCEL
     Dosage: UNK, ONCE/SINGLE
     Route: 041
     Dates: start: 2019
  4. KYMRIAH [Suspect]
     Active Substance: TISAGENLECLEUCEL
     Indication: B-CELL TYPE ACUTE LEUKAEMIA
     Dosage: UNK, ONCE/SINGLE
     Route: 041
     Dates: start: 2018
  5. FLUDARABINE [Concomitant]
     Active Substance: FLUDARABINE PHOSPHATE
     Indication: CHEMOTHERAPY
     Route: 065
  6. IMATINIB. [Concomitant]
     Active Substance: IMATINIB MESYLATE
     Indication: CHEMOTHERAPY
     Route: 065

REACTIONS (18)
  - B-cell type acute leukaemia [Unknown]
  - Depressed level of consciousness [Unknown]
  - Neutrophil count decreased [Recovered/Resolved]
  - Malignant neoplasm progression [Unknown]
  - Neurotoxicity [Recovered/Resolved]
  - Streptococcus test positive [Unknown]
  - Clostridium difficile infection [Unknown]
  - Platelet count decreased [Unknown]
  - Cytomegalovirus infection [Unknown]
  - Haematocrit decreased [Unknown]
  - Minimal residual disease [Unknown]
  - Tremor [Unknown]
  - Lymphocyte count decreased [Recovering/Resolving]
  - Haemoglobin decreased [Unknown]
  - Treatment failure [Recovered/Resolved]
  - White blood cell count decreased [Unknown]
  - Aspergillus infection [Unknown]
  - Hypogammaglobulinaemia [Recovered/Resolved]
